FAERS Safety Report 19512251 (Version 1)
Quarter: 2021Q3

REPORT INFORMATION
  Report Type: Spontaneous
  Country: FR (occurrence: FR)
  Receive Date: 20210709
  Receipt Date: 20210709
  Transmission Date: 20211014
  Serious: Yes (Other)
  Sender: FDA-Public Use
  Company Number: FR-REGENERON PHARMACEUTICALS, INC.-2021-54799

PATIENT

DRUGS (2)
  1. EYLEA [Suspect]
     Active Substance: AFLIBERCEPT
     Indication: PRODUCT USED FOR UNKNOWN INDICATION
     Dosage: UNK,TOTAL NUMBER OF DOSES: RIGHT EYE GREATER THAN, EQUAL TO 18; LEFT EYEGREATER THAN, EQUAL TO18
  2. EYLEA [Suspect]
     Active Substance: AFLIBERCEPT
     Dosage: UNK, INJECTION RIGHT EYE
     Route: 031
     Dates: start: 202103, end: 202103

REACTIONS (1)
  - Panophthalmitis [Recovering/Resolving]

NARRATIVE: CASE EVENT DATE: 20210328
